FAERS Safety Report 23775108 (Version 2)
Quarter: 2024Q2

REPORT INFORMATION
  Report Type: Spontaneous
  Country: KR (occurrence: KR)
  Receive Date: 20240423
  Receipt Date: 20240510
  Transmission Date: 20240716
  Serious: Yes (Hospitalization)
  Sender: FDA-Public Use
  Company Number: KR-MYLANLABS-2024M1036948

PATIENT
  Sex: Female

DRUGS (19)
  1. CLOZARIL [Suspect]
     Active Substance: CLOZAPINE
     Indication: Product used for unknown indication
     Dosage: 12.5 MILLIGRAM
     Route: 048
     Dates: start: 20230823
  2. CLOZARIL [Suspect]
     Active Substance: CLOZAPINE
     Dosage: 25 MILLIGRAM
     Route: 048
     Dates: start: 20230824
  3. CLOZARIL [Suspect]
     Active Substance: CLOZAPINE
     Dosage: 12.5 MILLIGRAM, AM (12.5MG IN MORNING 25MG IN EVENING)
     Route: 048
     Dates: start: 20230829
  4. CLOZARIL [Suspect]
     Active Substance: CLOZAPINE
     Dosage: 25 MILLIGRAM, PM (12.5MG IN MORNING 25MG IN EVENING)
     Route: 048
     Dates: start: 20230829
  5. CLOZARIL [Suspect]
     Active Substance: CLOZAPINE
     Dosage: 12.5 MILLIGRAM, AM (12.5MG IN MORNING 37.5MG IN EVENING)
     Route: 048
     Dates: start: 20230831
  6. CLOZARIL [Suspect]
     Active Substance: CLOZAPINE
     Dosage: 37.5 MILLIGRAM, PM (12.5MG IN MORNING 37.5MG IN EVENING)
     Route: 048
     Dates: start: 20230831
  7. CLOZARIL [Suspect]
     Active Substance: CLOZAPINE
     Dosage: 12.5 MILLIGRAM, AM (12.5MG IN MORNING 50MG IN EVENING)
     Route: 048
     Dates: start: 20230904
  8. CLOZARIL [Suspect]
     Active Substance: CLOZAPINE
     Dosage: 50 MILLIGRAM, PM (12.5MG IN MORNING 50MG IN EVENING)
     Route: 048
     Dates: start: 20230904
  9. CLOZARIL [Suspect]
     Active Substance: CLOZAPINE
     Dosage: 12.5 MILLIGRAM, AM (12.5MG IN MORNING 37.5MG IN EVENING)
     Route: 048
     Dates: start: 20230912
  10. CLOZARIL [Suspect]
     Active Substance: CLOZAPINE
     Dosage: 37.5 MILLIGRAM, PM (12.5MG IN MORNING 37.5MG IN EVENING)
     Route: 048
     Dates: start: 20230912
  11. CLOZARIL [Suspect]
     Active Substance: CLOZAPINE
     Dosage: 50 MILLIGRAM
     Route: 048
     Dates: start: 20231004
  12. CLOZARIL [Suspect]
     Active Substance: CLOZAPINE
     Dosage: 62.5 MILLIGRAM
     Route: 048
     Dates: start: 20231026
  13. CLOZARIL [Suspect]
     Active Substance: CLOZAPINE
     Dosage: 75 MILLIGRAM
     Route: 048
     Dates: start: 20231113
  14. CLOZARIL [Suspect]
     Active Substance: CLOZAPINE
     Dosage: 12.5 MILLIGRAM, AM (12.5MG IN MORNING 75MG IN EVENING)
     Route: 048
     Dates: start: 20231219
  15. CLOZARIL [Suspect]
     Active Substance: CLOZAPINE
     Dosage: 75 MILLIGRAM, PM (12.5MG IN MORNING 75MG IN EVENING)
     Route: 048
     Dates: start: 20231219
  16. CLOZARIL [Suspect]
     Active Substance: CLOZAPINE
     Dosage: 25 MILLIGRAM, AM (25MG IN MORNING 75MG IN EVENING)
     Route: 048
     Dates: start: 20231226
  17. CLOZARIL [Suspect]
     Active Substance: CLOZAPINE
     Dosage: 75 MILLIGRAM, PM (25MG IN MORNING 75MG IN EVENING)
     Route: 048
     Dates: start: 20231226
  18. CLOZARIL [Suspect]
     Active Substance: CLOZAPINE
     Dosage: 25 MILLIGRAM, AM (25MG IN MORNING 100MG IN EVENING)
     Route: 048
     Dates: start: 20240111, end: 20240401
  19. CLOZARIL [Suspect]
     Active Substance: CLOZAPINE
     Dosage: 100 MILLIGRAM, PM (25MG IN MORNING 100MG IN EVENING)
     Route: 048
     Dates: start: 20240111, end: 20240401

REACTIONS (1)
  - General physical health deterioration [Unknown]
